FAERS Safety Report 6078508-5 (Version None)
Quarter: 2009Q1

REPORT INFORMATION
  Report Type: 
  Country: None (occurrence: None)
  Receive Date: 20090211
  Receipt Date: 20090211
  Transmission Date: 20090719
  Serious: Yes (Hospitalization)
  Sender: FDA-Public Use
  Company Number: None

PATIENT
  Age: 11 Month
  Sex: Female
  Weight: 10 kg

DRUGS (1)
  1. PROPRANOLOL [Suspect]
     Indication: HAEMANGIOMA
     Dosage: 1.7 ML EVERY 8 HOURS PO
     Route: 048
     Dates: start: 20090105, end: 20090204

REACTIONS (7)
  - BODY TEMPERATURE DECREASED [None]
  - COLD SWEAT [None]
  - IRRITABILITY [None]
  - OFF LABEL USE [None]
  - PALLOR [None]
  - PERIPHERAL COLDNESS [None]
  - UNRESPONSIVE TO STIMULI [None]
